FAERS Safety Report 10150813 (Version 1)
Quarter: 2014Q2

REPORT INFORMATION
  Report Type: Spontaneous
  Country: US (occurrence: US)
  Receive Date: 20140502
  Receipt Date: 20140502
  Transmission Date: 20141212
  Serious: No
  Sender: FDA-Public Use
  Company Number: US-ASTRAZENECA-2013SE49299

PATIENT
  Age: 95 Year
  Sex: Female

DRUGS (5)
  1. PRILOSEC OTC [Suspect]
     Dosage: SIX YEARS AGO
     Route: 048
  2. PRILOSEC OTC [Suspect]
     Route: 048
     Dates: start: 20130612, end: 20130619
  3. COUMADIN [Concomitant]
  4. METOPROLOL SUCCINATE [Concomitant]
     Dosage: UNKNOWN
  5. FUROSEMIDE [Concomitant]
     Dosage: UNKNOWN

REACTIONS (2)
  - Nausea [Recovered/Resolved]
  - Labelled drug-drug interaction medication error [Unknown]
